FAERS Safety Report 9251443 (Version 2)
Quarter: 2013Q3

REPORT INFORMATION
  Report Type: Spontaneous
  Country: DE (occurrence: DE)
  Receive Date: 20130424
  Receipt Date: 20130704
  Transmission Date: 20140515
  Serious: Yes (Hospitalization)
  Sender: FDA-Public Use
  Company Number: DE-BRISTOL-MYERS SQUIBB COMPANY-18792051

PATIENT
  Age: 83 Year
  Sex: Female

DRUGS (10)
  1. ELIQUIS [Suspect]
     Indication: ATRIAL FIBRILLATION
     Dates: start: 20130227, end: 2013
  2. ACETYLSALICYLIC ACID [Suspect]
     Dosage: MRNG
  3. PROCORALAN [Concomitant]
     Dosage: MRNG AND NIGHT
  4. ATACAND [Concomitant]
     Dosage: MRNG AND NIGHT
  5. TOREM [Concomitant]
     Dosage: MRNG
  6. ATORVASTATIN [Concomitant]
     Dosage: NIGHT
  7. ZOLOFT [Concomitant]
  8. PANTOPRAZOLE [Concomitant]
     Dosage: MRNG AND NIGHT
  9. CANDESARTAN [Concomitant]
  10. ENOXAPARIN [Concomitant]
     Dosage: MRNG AND NIGHT
     Route: 058

REACTIONS (2)
  - Intestinal haemorrhage [Unknown]
  - Diarrhoea [Unknown]
